FAERS Safety Report 18233338 (Version 1)
Quarter: 2020Q3

REPORT INFORMATION
  Report Type: Spontaneous
  Country: US (occurrence: US)
  Receive Date: 20200904
  Receipt Date: 20200904
  Transmission Date: 20201103
  Serious: No
  Sender: FDA-Public Use
  Company Number: US-009507513-2009USA001647

PATIENT
  Age: 49 Year
  Sex: Female

DRUGS (1)
  1. KEYTRUDA [Suspect]
     Active Substance: PEMBROLIZUMAB
     Indication: CENTRAL NERVOUS SYSTEM LYMPHOMA
     Dosage: 200 MILLIGRAM, Q3W
     Route: 042

REACTIONS (1)
  - Product use in unapproved indication [Unknown]
